FAERS Safety Report 8376686-6 (Version None)
Quarter: 2012Q2

REPORT INFORMATION
  Report Type: 
  Country: None (occurrence: None)
  Receive Date: 20120522
  Receipt Date: 20120516
  Transmission Date: 20120825
  Serious: Yes (Hospitalization)
  Sender: FDA-Public Use
  Company Number: CO-ASTRAZENECA-2012SE32249

PATIENT
  Age: 1 Month
  Sex: Male
  Weight: 2.8 kg

DRUGS (1)
  1. SYNAGIS [Suspect]
     Indication: ANTIVIRAL PROPHYLAXIS
     Route: 030
     Dates: start: 20120425

REACTIONS (2)
  - PNEUMONIA [None]
  - BRONCHIOLITIS [None]
